FAERS Safety Report 19681534 (Version 2)
Quarter: 2021Q3

REPORT INFORMATION
  Report Type: Report from Study
  Country: EG (occurrence: EG)
  Receive Date: 20210810
  Receipt Date: 20210914
  Transmission Date: 20211014
  Serious: Yes (Other)
  Sender: FDA-Public Use
  Company Number: NVSC2021EG177576

PATIENT
  Age: 46 Year
  Sex: Female

DRUGS (5)
  1. DOROFEN [Concomitant]
     Indication: PRODUCT USED FOR UNKNOWN INDICATION
     Dosage: 1 DF (ONCE OR TWICE PER DAY)
     Route: 065
  2. SPASMO AMRASE [Concomitant]
     Indication: PRODUCT USED FOR UNKNOWN INDICATION
     Dosage: 1 DF, TID
     Route: 065
  3. OSSOFORTIN [Concomitant]
     Indication: PRODUCT USED FOR UNKNOWN INDICATION
     Dosage: 1 DF, QD
     Route: 065
  4. GILENYA [Suspect]
     Active Substance: FINGOLIMOD HYDROCHLORIDE
     Indication: MULTIPLE SCLEROSIS
     Dosage: 0.5 MG, QD
     Route: 048
     Dates: start: 201912
  5. DEVAROL [Concomitant]
     Indication: PRODUCT USED FOR UNKNOWN INDICATION
     Dosage: 1 DF, EVERY 15 DAYS
     Route: 065

REACTIONS (6)
  - Vitamin D deficiency [Recovering/Resolving]
  - Dyspnoea [Not Recovered/Not Resolved]
  - Dizziness [Recovering/Resolving]
  - Hypersensitivity [Not Recovered/Not Resolved]
  - Disturbance in attention [Recovering/Resolving]
  - Confusional state [Recovering/Resolving]

NARRATIVE: CASE EVENT DATE: 202012
